FAERS Safety Report 10181444 (Version 2)
Quarter: 2014Q2

REPORT INFORMATION
  Report Type: Spontaneous
  Country: TR (occurrence: TR)
  Receive Date: 20140519
  Receipt Date: 20140519
  Transmission Date: 20141212
  Serious: Yes (Hospitalization, Other)
  Sender: FDA-Public Use
  Company Number: TR-PFIZER INC-2014123275

PATIENT
  Age: 43 Year
  Sex: Male
  Weight: 93 kg

DRUGS (5)
  1. XANAX [Suspect]
     Indication: GENERALISED ANXIETY DISORDER
     Dosage: 2.5 MG OR 3 MG DAILY
  2. XANAX [Suspect]
     Indication: PANIC DISORDER WITH AGORAPHOBIA
  3. PAXERA [Concomitant]
     Dosage: 40 MG, UNK
  4. REXAPIN [Concomitant]
     Dosage: 2.5 MG, UNK
  5. LIPANTHYL [Concomitant]
     Indication: BLOOD CHOLESTEROL
     Dosage: UNK

REACTIONS (2)
  - Drug dependence [Not Recovered/Not Resolved]
  - Cerebral disorder [Unknown]
